FAERS Safety Report 5021000-7 (Version None)
Quarter: 2006Q2

REPORT INFORMATION
  Report Type: 
  Country: None (occurrence: None)
  Receive Date: 20060608
  Receipt Date: 20060529
  Transmission Date: 20061013
  Serious: Yes (Other)
  Sender: FDA-Public Use
  Company Number: PHBS2006JP07961

PATIENT
  Age: 47 Year
  Sex: Female

DRUGS (1)
  1. VOLTAREN [Suspect]
     Indication: BACK PAIN
     Dosage: 75 MG/DAY
     Route: 048
     Dates: start: 20060501, end: 20060501

REACTIONS (1)
  - URINARY RETENTION [None]
